FAERS Safety Report 9580219 (Version 1)
Quarter: 2013Q3

REPORT INFORMATION
  Report Type: Spontaneous
  Country: FR (occurrence: None)
  Receive Date: 20130930
  Receipt Date: 20130930
  Transmission Date: 20140515
  Serious: Yes (Other)
  Sender: FDA-Public Use
  Company Number: 2013P1019561

PATIENT
  Sex: 0

DRUGS (4)
  1. FUROSEMIDE [Suspect]
  2. ACEBUTOLOL [Suspect]
  3. ZOPICLONE [Suspect]
  4. CLONAZEPAM [Suspect]

REACTIONS (2)
  - Drug interaction [None]
  - Fall [None]
